FAERS Safety Report 8954470 (Version 3)
Quarter: 2013Q1

REPORT INFORMATION
  Report Type: Spontaneous
  Country: AU (occurrence: AU)
  Receive Date: 20121210
  Receipt Date: 20130128
  Transmission Date: 20140127
  Serious: Yes (Other)
  Sender: FDA-Public Use
  Company Number: PHHY2012AU112758

PATIENT
  Sex: Female

DRUGS (7)
  1. ACLASTA [Suspect]
     Dosage: 5 MG, UNK
     Route: 042
  2. ACLASTA [Suspect]
     Dosage: 5 MG, UNK
     Route: 042
  3. ACLASTA [Suspect]
     Dosage: 5 MG, UNK
     Route: 042
     Dates: start: 20121106
  4. ATORVASTATIN [Concomitant]
     Indication: DYSLIPIDAEMIA
     Dosage: UNK, QD
     Route: 048
  5. OMEPRAZOLE [Concomitant]
     Dosage: UNK, TID
     Route: 048
  6. COLOFAC [Concomitant]
     Dosage: 135 MG, UNK
     Route: 048
  7. GLYCERYL TRINITRATE [Concomitant]
     Indication: CHILLBLAINS

REACTIONS (4)
  - Conjunctivitis infective [Unknown]
  - Dry eye [Unknown]
  - Ocular hyperaemia [Unknown]
  - Nasopharyngitis [Unknown]
